FAERS Safety Report 6261380-8 (Version None)
Quarter: 2009Q3

REPORT INFORMATION
  Report Type: 
  Country: None (occurrence: None)
  Receive Date: 20090709
  Receipt Date: 20090630
  Transmission Date: 20100115
  Serious: Yes (Other)
  Sender: FDA-Public Use
  Company Number: AT-ASTRAZENECA-2009PK01070

PATIENT
  Age: 452 Month
  Sex: Female
  Weight: 55 kg

DRUGS (2)
  1. SEROQUEL [Suspect]
     Indication: SCHIZOPHRENIA
     Dosage: 100/100/100+200MG IN THE EVENING
     Route: 048
     Dates: start: 20010101, end: 20081101
  2. ZYPREXA [Concomitant]
     Indication: SLEEP DISORDER
     Route: 048
     Dates: start: 20030101, end: 20081202

REACTIONS (2)
  - GRANULOCYTOPENIA [None]
  - NATURAL KILLER CELL COUNT DECREASED [None]
